FAERS Safety Report 9338966 (Version 2)
Quarter: 2013Q4

REPORT INFORMATION
  Report Type: Spontaneous
  Country: GB (occurrence: GB)
  Receive Date: 20130610
  Receipt Date: 20131105
  Transmission Date: 20140711
  Serious: Yes (Hospitalization, Disabling)
  Sender: FDA-Public Use
  Company Number: PHHY2013GB056364

PATIENT
  Sex: Female
  Weight: 50.8 kg

DRUGS (13)
  1. CIPROFLOXACIN [Suspect]
     Indication: LOWER RESPIRATORY TRACT INFECTION
     Dosage: 500 MG, BID
     Route: 048
     Dates: start: 20130425, end: 20130503
  2. ZOPICLONE [Concomitant]
     Dosage: AT NIGHT
  3. LEVOTHYROXINE [Concomitant]
     Dosage: 25 UG, QD
  4. ASPIRIN COATED [Concomitant]
     Dosage: 75 MG, QD
  5. BISOPROLOL [Concomitant]
     Dosage: 1.25 MG, QD
  6. FLECAINIDE [Concomitant]
     Dosage: 50 MG, UNK (1-2 IN THE MORNING AND AT LUNCH)
  7. SERETIDE [Concomitant]
  8. CO-AMILOFRUSE [Concomitant]
     Dosage: 1 DF, QD (ONE IN THE MORNING)
  9. CETRABEN [Concomitant]
     Dosage: 500 G, UNK
     Route: 061
  10. IBANDRONIC ACID [Concomitant]
     Dosage: 150 MG, UNK
  11. LOPERAMIDE HYDROCHLORIDE [Concomitant]
     Dosage: 2 MG, BID
  12. VENTOLIN [Concomitant]
     Dosage: 100 UG, UNK (2 PUFFS 4 TIMES A DAY IF NECESSARY)
     Route: 055
  13. CLENIL MODULITE [Concomitant]
     Dosage: 100 UG, BID
     Route: 055

REACTIONS (4)
  - Contusion [Unknown]
  - Mobility decreased [Unknown]
  - Tendonitis [Not Recovered/Not Resolved]
  - Overdose [Unknown]
